FAERS Safety Report 18383928 (Version 1)
Quarter: 2020Q4

REPORT INFORMATION
  Report Type: Spontaneous
  Country: JP (occurrence: JP)
  Receive Date: 20201014
  Receipt Date: 20201014
  Transmission Date: 20210114
  Serious: Yes (Hospitalization, Other)
  Sender: FDA-Public Use
  Company Number: JP-PFIZER INC-2020389759

PATIENT
  Age: 90 Year
  Sex: Male

DRUGS (2)
  1. SELARA 50MG [Suspect]
     Active Substance: EPLERENONE
     Dosage: 50 MG, 1X/DAY(1 TABLET, FOR 7 DAYS AFTER BREAKFAST)
     Dates: start: 20201005
  2. FUROSEMIDE. [Suspect]
     Active Substance: FUROSEMIDE
     Dosage: UNK(1 TABLET RESPECTIVELY OF FUROSEMIDE 40MG AND 20MG)
     Dates: start: 20201005

REACTIONS (6)
  - General physical condition abnormal [Unknown]
  - Visual impairment [Unknown]
  - Vision blurred [Unknown]
  - Inflammation [Unknown]
  - Dyspnoea [Unknown]
  - Cough [Unknown]

NARRATIVE: CASE EVENT DATE: 202010
